FAERS Safety Report 4449942-1 (Version None)
Quarter: 2004Q3

REPORT INFORMATION
  Report Type: 
  Country: None (occurrence: None)
  Receive Date: 20040910
  Receipt Date: 20040617
  Transmission Date: 20050211
  Serious: Yes (Life-Threatening)
  Sender: FDA-Public Use
  Company Number: S04-USA-03249-01

PATIENT
  Age: 55 Year
  Sex: Male

DRUGS (2)
  1. LEXAPRO [Suspect]
     Indication: DEPRESSION
     Dosage: UNK
     Route: 065
     Dates: start: 20030101
  2. LEXAPRO [Suspect]
     Indication: SLEEP DISORDER
     Dosage: UNK
     Route: 065
     Dates: start: 20030101

REACTIONS (1)
  - SUICIDE ATTEMPT [None]
